FAERS Safety Report 9284862 (Version 1)
Quarter: 2013Q2

REPORT INFORMATION
  Report Type: Spontaneous
  Country: US (occurrence: US)
  Receive Date: 20130513
  Receipt Date: 20130513
  Transmission Date: 20140414
  Serious: No
  Sender: FDA-Public Use
  Company Number: US-BIOGENIDEC-2013BI042109

PATIENT
  Sex: Female

DRUGS (1)
  1. TYSABRI [Suspect]
     Indication: MULTIPLE SCLEROSIS
     Route: 042
     Dates: start: 20110928, end: 20130410

REACTIONS (3)
  - Depression [Recovered/Resolved with Sequelae]
  - Poor venous access [Recovered/Resolved]
  - Malaise [Recovered/Resolved]
